FAERS Safety Report 4453127-2 (Version None)
Quarter: 2004Q3

REPORT INFORMATION
  Report Type: 
  Country: None (occurrence: None)
  Receive Date: 20040813
  Receipt Date: 20040419
  Transmission Date: 20050211
  Serious: No
  Sender: FDA-Public Use
  Company Number: S04-USA-02903-01

PATIENT
  Age: 81 Year
  Sex: Male

DRUGS (4)
  1. NAMENDA [Suspect]
     Indication: DEMENTIA
     Dosage: 5 MG QD PO
     Route: 048
     Dates: start: 20040413
  2. ARICEPT [Concomitant]
  3. VITAMIN B COMPLEX CAP [Concomitant]
  4. ASPIRIN [Concomitant]

REACTIONS (1)
  - CONFUSIONAL STATE [None]
